FAERS Safety Report 7220588-5 (Version None)
Quarter: 2011Q1

REPORT INFORMATION
  Report Type: 
  Country: None (occurrence: None)
  Receive Date: 20110111
  Receipt Date: 20110107
  Transmission Date: 20110831
  Serious: Yes (Other)
  Sender: FDA-Public Use
  Company Number: US-PFIZER INC-2011005023

PATIENT
  Sex: Female
  Weight: 113.38 kg

DRUGS (2)
  1. XALATAN [Suspect]
     Indication: GLAUCOMA
     Dosage: 1 DROP IN EACH EYE DAILY
     Dates: start: 20100801
  2. BENADRYL [Concomitant]
     Indication: MULTIPLE ALLERGIES
     Dosage: 25 MG TO 50 MG DAILY; SOMETIMES TWO TIMES A DAY

REACTIONS (3)
  - CARDIAC DISORDER [None]
  - DRY EYE [None]
  - OCULAR HYPERAEMIA [None]
